FAERS Safety Report 19593367 (Version 1)
Quarter: 2021Q3

REPORT INFORMATION
  Report Type: Spontaneous
  Country: US (occurrence: US)
  Receive Date: 20210721
  Receipt Date: 20210721
  Transmission Date: 20211014
  Serious: Yes (Disabling)
  Sender: FDA-Public Use
  Company Number: None

PATIENT
  Age: 30 Year
  Sex: Female
  Weight: 72 kg

DRUGS (5)
  1. DESONIDE. [Suspect]
     Active Substance: DESONIDE
     Indication: ECZEMA
     Route: 061
  2. TRI?SPRINTEC [Concomitant]
     Active Substance: ETHINYL ESTRADIOL\NORGESTIMATE
  3. TRIAMCINOLONE [Suspect]
     Active Substance: TRIAMCINOLONE
     Route: 061
  4. FLUOCINONIDE. [Suspect]
     Active Substance: FLUOCINONIDE
     Route: 061
  5. SODIUM LEVOTHYROXINE [Concomitant]
     Active Substance: LEVOTHYROXINE SODIUM

REACTIONS (13)
  - Pruritus [None]
  - Drug ineffective [None]
  - Dry skin [None]
  - Skin exfoliation [None]
  - Skin irritation [None]
  - Infection [None]
  - Skin wound [None]
  - Neuralgia [None]
  - Steroid dependence [None]
  - Rash [None]
  - Asthenia [None]
  - Withdrawal syndrome [None]
  - Dermatitis [None]

NARRATIVE: CASE EVENT DATE: 20200321
